FAERS Safety Report 8093855-3 (Version None)
Quarter: 2012Q1

REPORT INFORMATION
  Report Type: 
  Country: None (occurrence: None)
  Receive Date: 20120129
  Receipt Date: 20110912
  Transmission Date: 20120608
  Serious: No
  Sender: FDA-Public Use
  Company Number: US-ABBOTT-11P-163-0854412-00

PATIENT
  Sex: Female
  Weight: 68.1 kg

DRUGS (6)
  1. WELLBUTRIN [Concomitant]
     Indication: DEPRESSION
  2. ASPIRIN [Concomitant]
     Indication: CARDIOVASCULAR EVENT PROPHYLAXIS
  3. ZOLOFT [Concomitant]
     Indication: DEPRESSION
  4. PREDNISONE TAB [Concomitant]
     Indication: PAIN
  5. HUMIRA [Suspect]
     Indication: RHEUMATOID ARTHRITIS
     Route: 058
     Dates: start: 20110826
  6. OMEPRAZOLE [Concomitant]
     Indication: GASTROOESOPHAGEAL REFLUX DISEASE

REACTIONS (3)
  - NAUSEA [None]
  - HEADACHE [None]
  - DIZZINESS [None]
